FAERS Safety Report 8103217-8 (Version None)
Quarter: 2012Q1

REPORT INFORMATION
  Report Type: 
  Country: None (occurrence: None)
  Receive Date: 20120127
  Receipt Date: 20120116
  Transmission Date: 20120608
  Serious: Yes (Hospitalization)
  Sender: FDA-Public Use
  Company Number: 2012AP000048

PATIENT
  Age: 54 Year
  Sex: Female

DRUGS (6)
  1. ACETAMINOPHEN AND HYDROCODONE BITARTRATE [Suspect]
     Dates: end: 20100101
  2. DIAZEPAM [Suspect]
     Dates: end: 20100101
  3. TRAMADOL HCL [Suspect]
     Dates: end: 20100101
  4. ETHANOL [Suspect]
     Dates: end: 20100101
  5. LATANOPROST [Suspect]
     Indication: OPEN ANGLE GLAUCOMA
     Dosage: EYE_DROP;OPH
     Route: 047
     Dates: end: 20100101
  6. COCAINE [Suspect]
     Dates: end: 20100101

REACTIONS (6)
  - FATIGUE [None]
  - PALPITATIONS [None]
  - ATRIOVENTRICULAR BLOCK SECOND DEGREE [None]
  - DYSPNOEA EXERTIONAL [None]
  - MITRAL VALVE INCOMPETENCE [None]
  - LETHARGY [None]
